FAERS Safety Report 19488109 (Version 4)
Quarter: 2023Q1

REPORT INFORMATION
  Report Type: Report from Study
  Country: US (occurrence: US)
  Receive Date: 20210702
  Receipt Date: 20230131
  Transmission Date: 20230417
  Serious: Yes (Other)
  Sender: FDA-Public Use
  Company Number: US-TAKEDA-US201932269

PATIENT
  Sex: Female

DRUGS (4)
  1. HUMAN IMMUNOGLOBULIN G [Suspect]
     Active Substance: HUMAN IMMUNOGLOBULIN G
     Indication: Primary immunodeficiency syndrome
     Dosage: 6 GRAM, 1/WEEK
     Route: 065
  2. HUMAN IMMUNOGLOBULIN G [Suspect]
     Active Substance: HUMAN IMMUNOGLOBULIN G
     Dosage: 7 GRAM, 1/WEEK
     Route: 065
  3. HUMAN IMMUNOGLOBULIN G [Suspect]
     Active Substance: HUMAN IMMUNOGLOBULIN G
     Dosage: 8 GRAM, 1/WEEK
     Route: 065
  4. HUMAN IMMUNOGLOBULIN G [Suspect]
     Active Substance: HUMAN IMMUNOGLOBULIN G
     Dosage: 11 GRAM
     Route: 065

REACTIONS (24)
  - Sjogren^s syndrome [Unknown]
  - Arthralgia [Recovering/Resolving]
  - Vitiligo [Recovering/Resolving]
  - Bronchitis [Recovering/Resolving]
  - Energy increased [Unknown]
  - Sinusitis [Unknown]
  - Weight increased [Unknown]
  - Dysphonia [Unknown]
  - Vasculitis [Unknown]
  - Drug ineffective [Unknown]
  - Multiple allergies [Unknown]
  - Muscle disorder [Unknown]
  - Feeling abnormal [Unknown]
  - Visual impairment [Unknown]
  - Fatigue [Unknown]
  - Pain [Unknown]
  - Dyspnoea [Unknown]
  - Crying [Unknown]
  - Lung disorder [Unknown]
  - COVID-19 [Unknown]
  - Post procedural complication [Unknown]
  - Cough [Unknown]
  - Insomnia [Unknown]
  - Inappropriate schedule of product administration [Unknown]
